FAERS Safety Report 7314325-3 (Version None)
Quarter: 2011Q1

REPORT INFORMATION
  Report Type: 
  Country: None (occurrence: None)
  Receive Date: 20110225
  Receipt Date: 20100720
  Transmission Date: 20110831
  Serious: No
  Sender: FDA-Public Use
  Company Number: US-MYLANLABS-2010S1013184

PATIENT
  Age: 19 Year
  Sex: Female
  Weight: 77.57 kg

DRUGS (6)
  1. CLARAVIS [Suspect]
     Route: 048
  2. AMNESTEEM [Suspect]
     Indication: ACNE
     Route: 048
     Dates: end: 20100708
  3. MULTIVITAMIN [Concomitant]
  4. ORAL CONTRACEPTIVE NOS [Concomitant]
  5. CLARAVIS [Suspect]
     Route: 048
     Dates: start: 20100414
  6. CLARAVIS [Suspect]
     Indication: ACNE
     Route: 048
     Dates: start: 20100317, end: 20100414

REACTIONS (1)
  - BLOOD TRIGLYCERIDES INCREASED [None]
